FAERS Safety Report 7254587-4 (Version None)
Quarter: 2011Q1

REPORT INFORMATION
  Report Type: 
  Country: None (occurrence: None)
  Receive Date: 20110129
  Receipt Date: 20100219
  Transmission Date: 20110831
  Serious: No
  Sender: FDA-Public Use
  Company Number: US-ABBOTT-10P-163-0628472-00

PATIENT
  Sex: Female
  Weight: 93.07 kg

DRUGS (6)
  1. HUMIRA [Suspect]
     Indication: RHEUMATOID ARTHRITIS
     Dates: start: 20090101
  2. UNKNOWN MEDICATIONS [Concomitant]
     Indication: THYROID DISORDER
  3. HUMIRA [Suspect]
  4. CORTIZONE [Concomitant]
     Indication: JOINT SWELLING
     Route: 050
  5. CALCIUM [Concomitant]
     Indication: MINERAL SUPPLEMENTATION
  6. UNKNOWN MEDICATIONS [Concomitant]
     Indication: HYPERTENSION

REACTIONS (2)
  - RHEUMATOID ARTHRITIS [None]
  - BRONCHITIS [None]
